FAERS Safety Report 9103991 (Version 3)
Quarter: 2013Q3

REPORT INFORMATION
  Report Type: Spontaneous
  Country: ES (occurrence: ES)
  Receive Date: 20130219
  Receipt Date: 20130905
  Transmission Date: 20140515
  Serious: Yes (Other)
  Sender: FDA-Public Use
  Company Number: ES-AMGEN-ESPSP2012059694

PATIENT
  Age: 19 Year
  Sex: Female
  Weight: 53.97 kg

DRUGS (6)
  1. ARANESP [Suspect]
     Indication: NEPHROGENIC ANAEMIA
     Dosage: 20 UNK, QWK
     Route: 042
     Dates: start: 20120908
  2. CARIBAN [Concomitant]
     Indication: NAUSEA
     Route: 048
  3. FOLIC ACID [Concomitant]
     Dosage: 2.5 UNK, QD
     Route: 048
     Dates: start: 201208
  4. VENOFER [Concomitant]
     Dosage: 1 DF, QMO
     Route: 042
     Dates: start: 20120908
  5. TRANDATE [Concomitant]
     Indication: HYPERTENSION
     Dosage: UNK UNK, Q8H
     Route: 048
     Dates: start: 20121001
  6. METHYLDOPA [Concomitant]
     Indication: HYPERTENSION
     Dosage: UNK UNK, Q8H
     Route: 048
     Dates: start: 20120924, end: 20120927

REACTIONS (7)
  - Premature delivery [Unknown]
  - Pre-eclampsia [Unknown]
  - Premature labour [Unknown]
  - Premature separation of placenta [Unknown]
  - Caesarean section [Unknown]
  - Induced labour [Unknown]
  - Peritoneal dialysis [Unknown]
